FAERS Safety Report 6236360-9 (Version None)
Quarter: 2009Q2

REPORT INFORMATION
  Report Type: 
  Country: None (occurrence: None)
  Receive Date: 20090619
  Receipt Date: 20090604
  Transmission Date: 20091009
  Serious: Yes (Death, Hospitalization)
  Sender: FDA-Public Use
  Company Number: US-AVENTIS-200914435GDDC

PATIENT
  Age: 80 Year
  Sex: Female
  Weight: 69 kg

DRUGS (12)
  1. PLACEBO [Suspect]
     Indication: NON-SMALL CELL LUNG CANCER
     Route: 042
     Dates: start: 20090417, end: 20090417
  2. DOCETAXEL [Suspect]
     Indication: NON-SMALL CELL LUNG CANCER
     Route: 042
     Dates: start: 20090417, end: 20090417
  3. SPIRIVA [Concomitant]
     Dates: start: 20081031
  4. ZOFRAN [Concomitant]
     Dates: start: 20081017
  5. TYLENOL W/ CODEINE NO. 3 [Concomitant]
     Dates: start: 20080912
  6. ATIVAN [Concomitant]
     Dates: start: 20081017
  7. ADVAIR HFA [Concomitant]
     Dates: start: 20080912
  8. NEXIUM [Concomitant]
     Dates: start: 20080912
  9. COMBIVENT [Concomitant]
     Dates: start: 20080912
  10. CORTICOSTEROIDS [Concomitant]
  11. CALTRATE                           /00108001/ [Concomitant]
     Dates: start: 20050401
  12. VIT D [Concomitant]
     Dates: start: 20050405

REACTIONS (2)
  - DYSPNOEA [None]
  - HYPOXIA [None]
